FAERS Safety Report 21239895 (Version 3)
Quarter: 2022Q3

REPORT INFORMATION
  Report Type: Spontaneous
  Country: PL (occurrence: PL)
  Receive Date: 20220822
  Receipt Date: 20220923
  Transmission Date: 20221026
  Serious: Yes (Other)
  Sender: FDA-Public Use
  Company Number: PL-MYLANLABS-2022M1087944

PATIENT
  Age: 54 Year
  Sex: Female

DRUGS (11)
  1. ALPRAZOLAM [Suspect]
     Active Substance: ALPRAZOLAM
     Indication: Insomnia
     Dosage: 0.25 MILLIGRAM, QD, (0.25 MG IN THE EVENING)
     Route: 065
  2. ALPRAZOLAM [Suspect]
     Active Substance: ALPRAZOLAM
     Dosage: 1 MILLIGRAM, QD, (1 MG TWICE A DAY)
     Route: 065
  3. ALPRAZOLAM [Suspect]
     Active Substance: ALPRAZOLAM
     Dosage: 1 MILLIGRAM, TID, (1 MG UP TO THREE TIMES A DAY)
     Route: 065
  4. ESTAZOLAM [Suspect]
     Active Substance: ESTAZOLAM
     Indication: Insomnia
     Dosage: 2 MILLIGRAM, HS, (30 MINUTES BEFORE BEDTIME)
     Route: 048
  5. ESTAZOLAM [Suspect]
     Active Substance: ESTAZOLAM
     Dosage: 2 MILLIGRAM, QH, (6-8 TABLETS A DAY, 1 TABLET EVERY HOUR AT NIGHT)
     Route: 048
  6. ZOLPIDEM [Suspect]
     Active Substance: ZOLPIDEM TARTRATE
     Indication: Insomnia
     Dosage: 10 MILLIGRAM, HS, (AT BEDTIME)
     Route: 048
  7. ZOLPIDEM [Suspect]
     Active Substance: ZOLPIDEM TARTRATE
     Dosage: 10 MILLIGRAM, QD, (6-8 TABLETS A DAY, 1 TABLET EVERY HOUR AT NIGHT)
     Route: 048
  8. ACEMETACIN [Concomitant]
     Active Substance: ACEMETACIN
     Indication: Rheumatoid arthritis
     Dosage: 90 MILLIGRAM, QD
     Route: 065
  9. ACEMETACIN [Concomitant]
     Active Substance: ACEMETACIN
     Dosage: UP TO 6 TABLETS DAILY
     Route: 048
  10. METHOTREXATE [Concomitant]
     Active Substance: METHOTREXATE
     Indication: Rheumatoid arthritis
     Dosage: 10 MILLIGRAM, QW, (PER WEEK)
     Route: 065
  11. METHYLPREDNISOLONE [Concomitant]
     Active Substance: METHYLPREDNISOLONE
     Indication: Rheumatoid arthritis
     Dosage: 4 MILLIGRAM, QD
     Route: 065

REACTIONS (11)
  - Drug abuse [Unknown]
  - Drug dependence [Unknown]
  - Therapeutic product effect incomplete [Unknown]
  - Drug ineffective [Unknown]
  - Arthralgia [Unknown]
  - Scar [Unknown]
  - Tachycardia [Unknown]
  - Obesity [Unknown]
  - Intentional product use issue [Unknown]
  - Insomnia [Unknown]
  - Peripheral swelling [Unknown]
